FAERS Safety Report 15213016 (Version 2)
Quarter: 2018Q3

REPORT INFORMATION
  Report Type: Spontaneous
  Country: US (occurrence: US)
  Receive Date: 20180730
  Receipt Date: 20180824
  Transmission Date: 20181010
  Serious: Yes (Hospitalization, Other)
  Sender: FDA-Public Use
  Company Number: US-ROCHE-2160493

PATIENT
  Age: 64 Year
  Sex: Male

DRUGS (6)
  1. ZELBORAF [Suspect]
     Active Substance: VEMURAFENIB
     Indication: MALIGNANT MELANOMA
     Dosage: 3 MONTHS
     Route: 048
     Dates: start: 20180519
  2. COTELLIC [Suspect]
     Active Substance: COBIMETINIB
     Route: 048
  3. COTELLIC [Suspect]
     Active Substance: COBIMETINIB
     Dosage: DAILY; 3 MONTHS; DOSE REDUCED FROM 60 MG TO 40 MG
     Route: 048
  4. DILTIAZEM. [Concomitant]
     Active Substance: DILTIAZEM
  5. METOPROLOL. [Concomitant]
     Active Substance: METOPROLOL
  6. COTELLIC [Suspect]
     Active Substance: COBIMETINIB
     Indication: MALIGNANT MELANOMA
     Route: 048
     Dates: start: 20180519, end: 20180630

REACTIONS (2)
  - Cardiac disorder [Unknown]
  - Myocarditis [Unknown]

NARRATIVE: CASE EVENT DATE: 20180630
